FAERS Safety Report 8996595 (Version 3)
Quarter: 2013Q2

REPORT INFORMATION
  Report Type: Spontaneous
  Country: US (occurrence: US)
  Receive Date: 20130104
  Receipt Date: 20130402
  Transmission Date: 20140414
  Serious: Yes (Other)
  Sender: FDA-Public Use
  Company Number: US-009507513-1301USA000563

PATIENT
  Sex: Female
  Weight: 86.17 kg

DRUGS (3)
  1. PEGINTRON [Suspect]
     Indication: HEPATITIS C
     Dosage: UNK
  2. RIBAVIRIN [Suspect]
     Indication: HEPATITIS C
     Route: 048
  3. TELAPREVIR [Suspect]
     Indication: HEPATITIS C
     Dosage: UNK

REACTIONS (13)
  - Abdominal distension [Unknown]
  - Gastrointestinal disorder [Unknown]
  - Weight increased [Unknown]
  - Gastric disorder [Unknown]
  - Psychiatric symptom [Unknown]
  - Thirst [Unknown]
  - Local swelling [Unknown]
  - Fluid retention [Unknown]
  - Weight decreased [Unknown]
  - Rash [Unknown]
  - Haemoglobin decreased [Unknown]
  - Dry skin [Unknown]
  - Haemoglobin decreased [Unknown]
